FAERS Safety Report 16963433 (Version 1)
Quarter: 2019Q4

REPORT INFORMATION
  Report Type: Spontaneous
  Country: US (occurrence: US)
  Receive Date: 20191025
  Receipt Date: 20191025
  Transmission Date: 20200122
  Serious: No
  Sender: FDA-Public Use
  Company Number: US-TEVA-2019-US-1126450

PATIENT
  Sex: Female

DRUGS (1)
  1. FOSINOPRIL SODIUM TABLETS [Suspect]
     Active Substance: FOSINOPRIL SODIUM
     Route: 065

REACTIONS (1)
  - Malaise [Unknown]
